FAERS Safety Report 16758596 (Version 1)
Quarter: 2019Q3

REPORT INFORMATION
  Report Type: Spontaneous
  Country: FI (occurrence: FI)
  Receive Date: 20190830
  Receipt Date: 20190830
  Transmission Date: 20191005
  Serious: Yes (Life-Threatening)
  Sender: FDA-Public Use
  Company Number: FI-ORION CORPORATION ORION PHARMA-19_00006892

PATIENT
  Age: 86 Year
  Sex: Female

DRUGS (10)
  1. ATORVASTATIN [Concomitant]
     Active Substance: ATORVASTATIN
     Route: 065
  2. PRIMASPAN [Concomitant]
     Active Substance: ASPIRIN
     Route: 065
  3. PREDNISOLON [Concomitant]
     Active Substance: PREDNISOLONE
     Route: 065
  4. EMCONCOR CHF [Concomitant]
     Active Substance: BISOPROLOL FUMARATE
     Route: 065
  5. PROPRAL [Concomitant]
     Route: 065
  6. TREXAN [Suspect]
     Active Substance: METHOTREXATE SODIUM
     Indication: ARTHRITIS
     Route: 048
     Dates: start: 20190603, end: 20190717
  7. FOLIC ACID. [Concomitant]
     Active Substance: FOLIC ACID
     Route: 065
  8. COHEMIN DEPOT [Concomitant]
     Route: 065
  9. LOSARTAN. [Concomitant]
     Active Substance: LOSARTAN
     Route: 065
  10. PANADOL FORTE [Concomitant]
     Route: 065

REACTIONS (1)
  - Lung infiltration [Recovered/Resolved]

NARRATIVE: CASE EVENT DATE: 20190717
